FAERS Safety Report 24418342 (Version 3)
Quarter: 2024Q4

REPORT INFORMATION
  Report Type: Spontaneous
  Country: US (occurrence: US)
  Receive Date: 20241009
  Receipt Date: 20241022
  Transmission Date: 20250115
  Serious: No
  Sender: SANOFI AVENTIS
  Company Number: US-SANOFI-02238247

PATIENT
  Age: 68 Year
  Sex: Male

DRUGS (1)
  1. DUPIXENT [Suspect]
     Active Substance: DUPILUMAB
     Indication: Asthma
     Dosage: 300 MG, QOW
     Route: 058
     Dates: start: 20240708

REACTIONS (5)
  - Hyperaesthesia teeth [Unknown]
  - Dry mouth [Unknown]
  - Condition aggravated [Unknown]
  - Oral pain [Unknown]
  - Toothache [Unknown]

NARRATIVE: CASE EVENT DATE: 20240101
